FAERS Safety Report 7819181-2 (Version None)
Quarter: 2011Q4

REPORT INFORMATION
  Report Type: 
  Country: None (occurrence: None)
  Receive Date: 20111018
  Receipt Date: 20111012
  Transmission Date: 20120403
  Serious: Yes (Other)
  Sender: FDA-Public Use
  Company Number: US-B.I. PHARMACEUTICALS,INC./RIDGEFIELD-2011-BP-24268PF

PATIENT
  Sex: Female

DRUGS (3)
  1. CHANTIX [Suspect]
     Route: 065
  2. ALPRAZOLAM [Suspect]
     Route: 065
  3. SPIRIVA [Suspect]
     Route: 065

REACTIONS (6)
  - SURGERY [None]
  - WEIGHT INCREASED [None]
  - OSTEOPOROSIS [None]
  - CHRONIC OBSTRUCTIVE PULMONARY DISEASE [None]
  - HYPERTENSION [None]
  - MULTIPLE ALLERGIES [None]
